FAERS Safety Report 23513351 (Version 1)
Quarter: 2024Q1

REPORT INFORMATION
  Report Type: Spontaneous
  Country: CN (occurrence: CN)
  Receive Date: 20240212
  Receipt Date: 20240212
  Transmission Date: 20240410
  Serious: Yes (Hospitalization, Other)
  Sender: FDA-Public Use
  Company Number: CN-TRIS PHARMA, INC.-24CN011328

PATIENT

DRUGS (1)
  1. NEXICLON XR [Suspect]
     Active Substance: CLONIDINE
     Indication: Product used for unknown indication
     Dosage: UNK

REACTIONS (12)
  - Unresponsive to stimuli [Recovered/Resolved]
  - Loss of consciousness [Recovered/Resolved]
  - Cough [Recovered/Resolved]
  - Wheezing [Recovered/Resolved]
  - Tinnitus [Recovered/Resolved]
  - Dyspnoea [Recovered/Resolved]
  - Product leakage [Unknown]
  - Manufacturing equipment issue [Unknown]
  - Occupational exposure to product [Recovered/Resolved]
  - Hypertension [Recovered/Resolved]
  - Sinus bradycardia [Recovered/Resolved]
  - Dizziness [Recovered/Resolved]
